FAERS Safety Report 7482660-4 (Version None)
Quarter: 2011Q2

REPORT INFORMATION
  Report Type: 
  Country: None (occurrence: None)
  Receive Date: 20110516
  Receipt Date: 20110512
  Transmission Date: 20111010
  Serious: Yes (Other)
  Sender: FDA-Public Use
  Company Number: US-PFIZER INC-2011102645

PATIENT
  Sex: Male
  Weight: 68.027 kg

DRUGS (3)
  1. CHANTIX [Suspect]
     Dosage: 0.5 MG, 2X/DAY
     Dates: start: 20110512
  2. CHANTIX [Suspect]
     Indication: SMOKING CESSATION THERAPY
     Dosage: 0.5 MG, 1X/DAY
     Route: 048
     Dates: start: 20110508
  3. XANAX [Concomitant]
     Indication: INSOMNIA
     Dosage: UNK

REACTIONS (7)
  - IMPAIRED WORK ABILITY [None]
  - CONFUSIONAL STATE [None]
  - FAMILY STRESS [None]
  - NAUSEA [None]
  - APATHY [None]
  - AGITATION [None]
  - FEELING ABNORMAL [None]
